FAERS Safety Report 7455550-0 (Version None)
Quarter: 2011Q2

REPORT INFORMATION
  Report Type: 
  Country: None (occurrence: None)
  Receive Date: 20110503
  Receipt Date: 20110321
  Transmission Date: 20111010
  Serious: Yes (Hospitalization)
  Sender: FDA-Public Use
  Company Number: US-BAYER-201028095NA

PATIENT
  Sex: Female
  Weight: 75 kg

DRUGS (11)
  1. YASMIN [Suspect]
     Indication: ACNE
     Dosage: UNK UNK, UNK
     Route: 048
     Dates: start: 20020101, end: 20060101
  2. YAZ [Suspect]
     Indication: ACNE
     Dosage: UNK
     Route: 048
     Dates: start: 20060101, end: 20090101
  3. ANTIEMETICS AND ANTINAUSEANTS [Concomitant]
     Dosage: UNK
     Dates: start: 20060709
  4. NAPROSYN [Concomitant]
     Dosage: UNK
     Dates: start: 19980101
  5. YAZ [Suspect]
     Indication: ORAL CONTRACEPTION
  6. PRILOSEC [Concomitant]
  7. VICODIN [Concomitant]
     Indication: ABDOMINAL PAIN
  8. LOVENOX [Concomitant]
     Dosage: UNK
     Dates: start: 20060817
  9. ZOMIG [Concomitant]
     Indication: MIGRAINE
     Dosage: UNK
     Dates: start: 20070101
  10. MOTRIN [Concomitant]
     Dosage: UNK
     Dates: start: 19980101
  11. YASMIN [Suspect]
     Indication: ORAL CONTRACEPTION

REACTIONS (8)
  - ABDOMINAL PAIN UPPER [None]
  - PAIN [None]
  - NAUSEA [None]
  - FLANK PAIN [None]
  - CHOLECYSTITIS CHRONIC [None]
  - DYSPEPSIA [None]
  - CHOLELITHIASIS [None]
  - VOMITING [None]
